FAERS Safety Report 14240311 (Version 1)
Quarter: 2017Q4

REPORT INFORMATION
  Report Type: Spontaneous
  Country: US (occurrence: US)
  Receive Date: 20171129
  Receipt Date: 20171129
  Transmission Date: 20180321
  Serious: Yes (Disabling)
  Sender: FDA-Public Use
  Company Number: None

PATIENT
  Age: 26 Year
  Sex: Female
  Weight: 63 kg

DRUGS (1)
  1. LUPRON [Suspect]
     Active Substance: LEUPROLIDE ACETATE
     Indication: ENDOMETRIOSIS
     Dosage: QUANTITY:2 INJECTION(S);OTHER FREQUENCY:EVERY 3 MONTHS;OTHER ROUTE:INJECTED INTO BUTT?
     Dates: start: 20170401, end: 20170811

REACTIONS (29)
  - Insomnia [None]
  - Dizziness [None]
  - Libido decreased [None]
  - Nausea [None]
  - Breast swelling [None]
  - Mood swings [None]
  - Hot flush [None]
  - Night sweats [None]
  - Migraine [None]
  - Confusional state [None]
  - Impaired quality of life [None]
  - Hostility [None]
  - Vaginal haemorrhage [None]
  - Malaise [None]
  - Headache [None]
  - Abdominal pain upper [None]
  - Chest pain [None]
  - Anger [None]
  - Aggression [None]
  - Abnormal behaviour [None]
  - Nervousness [None]
  - Chills [None]
  - Depression [None]
  - Hyperhidrosis [None]
  - Speech disorder [None]
  - Diarrhoea [None]
  - Constipation [None]
  - Tenderness [None]
  - Amnesia [None]

NARRATIVE: CASE EVENT DATE: 20170420
